FAERS Safety Report 16801690 (Version 2)
Quarter: 2019Q4

REPORT INFORMATION
  Report Type: Report from Study
  Country: US (occurrence: US)
  Receive Date: 20190912
  Receipt Date: 20191003
  Transmission Date: 20200122
  Serious: Yes (Other)
  Sender: FDA-Public Use
  Company Number: US-UCBSA-2019032447

PATIENT
  Age: 62 Year
  Sex: Female

DRUGS (2)
  1. ROTIGOTINE [Suspect]
     Active Substance: ROTIGOTINE
     Indication: PARKINSON^S DISEASE
     Dosage: UNK
     Dates: start: 2012
  2. ROTIGOTINE [Suspect]
     Active Substance: ROTIGOTINE
     Indication: RESTLESS LEGS SYNDROME
     Dosage: 3 MILLIGRAM, ONCE DAILY (QD)
     Dates: start: 20170219, end: 201907

REACTIONS (6)
  - Anxiety [Recovering/Resolving]
  - Panic attack [Recovering/Resolving]
  - Dysphoria [Recovering/Resolving]
  - Agitation [Recovering/Resolving]
  - Fatigue [Recovering/Resolving]
  - Product dose omission [Unknown]

NARRATIVE: CASE EVENT DATE: 20190427
